FAERS Safety Report 7247605-0 (Version None)
Quarter: 2011Q1

REPORT INFORMATION
  Report Type: 
  Country: None (occurrence: None)
  Receive Date: 20110127
  Receipt Date: 20110120
  Transmission Date: 20110831
  Serious: Yes (Other)
  Sender: FDA-Public Use
  Company Number: BR-SANOFI-AVENTIS-2011SA004217

PATIENT
  Sex: Male
  Weight: 85 kg

DRUGS (12)
  1. OPTIPEN [Suspect]
     Dates: start: 20070101
  2. ENALAPRIL [Concomitant]
     Route: 048
     Dates: start: 20070101
  3. CLOPIDOGREL [Concomitant]
     Route: 048
     Dates: start: 20060101
  4. BENERVA [Concomitant]
     Route: 048
     Dates: start: 20060101
  5. LOSARTAN [Concomitant]
     Indication: RENAL DISORDER
     Route: 048
     Dates: start: 20100101
  6. JANUVIA [Concomitant]
     Indication: TYPE 2 DIABETES MELLITUS
     Route: 048
     Dates: start: 20070101
  7. ALLOPURINOL [Concomitant]
     Indication: RENAL DISORDER
     Route: 048
     Dates: start: 20100101
  8. AAS [Concomitant]
     Indication: PROMOTION OF PERIPHERAL CIRCULATION
     Route: 048
     Dates: start: 19990101
  9. LANTUS [Suspect]
     Indication: TYPE 2 DIABETES MELLITUS
     Route: 058
     Dates: start: 20070101
  10. NOVORAPID [Concomitant]
     Indication: TYPE 2 DIABETES MELLITUS
     Dosage: ACCORDING TO GLYCEMIA
     Route: 058
     Dates: start: 20070101
  11. CARVEDILOL [Concomitant]
     Route: 048
     Dates: start: 20070101
  12. LASIX [Concomitant]
     Indication: RENAL DISORDER
     Route: 048
     Dates: start: 20100101

REACTIONS (7)
  - CONDITION AGGRAVATED [None]
  - HYPERGLYCAEMIA [None]
  - POLLAKIURIA [None]
  - EYE HAEMORRHAGE [None]
  - THIRST [None]
  - HUNGER [None]
  - CATARACT [None]
